FAERS Safety Report 13717044 (Version 1)
Quarter: 2017Q3

REPORT INFORMATION
  Report Type: Spontaneous
  Country: US (occurrence: US)
  Receive Date: 20170704
  Receipt Date: 20170704
  Transmission Date: 20171127
  Serious: Yes (Disabling)
  Sender: FDA-Public Use
  Company Number: None

PATIENT
  Age: 46 Year
  Sex: Female
  Weight: 83.25 kg

DRUGS (6)
  1. ALEVE [Concomitant]
     Active Substance: NAPROXEN SODIUM
  2. PROZAC [Concomitant]
     Active Substance: FLUOXETINE HYDROCHLORIDE
  3. LEVOTHYROXIN [Suspect]
     Active Substance: LEVOTHYROXINE
     Indication: OROPHARYNGEAL PAIN
     Dosage: ?          OTHER STRENGTH:MG;QUANTITY:30 TABLET(S);?
     Route: 048
  4. LOSARTAN. [Concomitant]
     Active Substance: LOSARTAN
  5. IBUPROFEN. [Concomitant]
     Active Substance: IBUPROFEN
  6. HCTZ [Concomitant]
     Active Substance: HYDROCHLOROTHIAZIDE

REACTIONS (18)
  - Lymphadenopathy [None]
  - Skin discolouration [None]
  - Paraesthesia [None]
  - Confusional state [None]
  - Muscle atrophy [None]
  - Hallucination, visual [None]
  - Hyperhidrosis [None]
  - Contusion [None]
  - Amenorrhoea [None]
  - Oropharyngeal pain [None]
  - Hypoaesthesia [None]
  - Joint swelling [None]
  - Poor quality sleep [None]
  - Eyelid ptosis [None]
  - Peripheral swelling [None]
  - Pain in extremity [None]
  - Arthralgia [None]
  - Suicidal ideation [None]

NARRATIVE: CASE EVENT DATE: 20170330
